FAERS Safety Report 4293823-3 (Version None)
Quarter: 2004Q1

REPORT INFORMATION
  Report Type: 
  Country: None (occurrence: None)
  Receive Date: 20040126
  Receipt Date: 20031104
  Transmission Date: 20041129
  Serious: No
  Sender: FDA-Public Use
  Company Number: USA031049420

PATIENT
  Age: 50 Year
  Sex: Female
  Weight: 100 kg

DRUGS (10)
  1. FORTEO [Suspect]
     Dosage: 20 UG/DAY
     Dates: start: 20030601, end: 20031015
  2. ENTEX CAP [Concomitant]
  3. MOBIC [Concomitant]
  4. ESTRATEST [Concomitant]
  5. CLEOCIN [Concomitant]
  6. LORTAB [Concomitant]
  7. AMBIEN [Concomitant]
  8. ACTONEL [Concomitant]
  9. GABITRIL [Concomitant]
  10. METROGEL [Concomitant]

REACTIONS (15)
  - ABASIA [None]
  - BLISTER [None]
  - BURNING SENSATION [None]
  - FEELING ABNORMAL [None]
  - HYPOAESTHESIA [None]
  - MUSCLE CONTRACTURE [None]
  - MUSCLE CRAMP [None]
  - MUSCLE SPASMS [None]
  - NEUROPATHY [None]
  - PAIN IN EXTREMITY [None]
  - PARAESTHESIA [None]
  - RESTLESS LEGS SYNDROME [None]
  - VAGINAL DISCHARGE [None]
  - VAGINAL INFECTION [None]
  - VAGINITIS BACTERIAL [None]
